FAERS Safety Report 7493835-2 (Version None)
Quarter: 2011Q2

REPORT INFORMATION
  Report Type: 
  Country: None (occurrence: None)
  Receive Date: 20110520
  Receipt Date: 20110510
  Transmission Date: 20111010
  Serious: Yes (Other)
  Sender: FDA-Public Use
  Company Number: US-SANOFI-AVENTIS-2011SA024063

PATIENT
  Age: 81 Year
  Sex: Female
  Weight: 70 kg

DRUGS (18)
  1. OPTICLICK [Suspect]
     Indication: TYPE 2 DIABETES MELLITUS
  2. LANTUS [Suspect]
     Indication: TYPE 2 DIABETES MELLITUS
     Dosage: DOSE:25 UNIT(S)
     Route: 058
     Dates: start: 20060901
  3. ASPIRIN [Concomitant]
     Route: 048
  4. RANOLAZINE [Concomitant]
     Route: 048
  5. ISOSORBIDE MONONITRATE [Concomitant]
     Route: 065
  6. POTASSIUM CHLORIDE [Concomitant]
     Route: 065
  7. ALL OTHER THERAPEUTIC PRODUCTS [Concomitant]
  8. FUROSEMIDE [Concomitant]
     Route: 065
  9. NITROGLYCERIN [Concomitant]
     Route: 065
  10. OMEPRAZOLE [Concomitant]
     Route: 065
  11. FLUTICASONE PROPIONATE [Concomitant]
     Route: 065
  12. GABAPENTIN [Concomitant]
     Route: 065
  13. SERTRALINE HYDROCHLORIDE [Concomitant]
     Route: 065
  14. TOPROL-XL [Concomitant]
     Dosage: DOSE:50 UNIT(S)
     Route: 048
  15. ACETAMINOPHEN AND HYDROCODONE BITARTRATE [Concomitant]
     Route: 065
  16. CLOBETASOL PROPIONATE [Concomitant]
     Route: 061
  17. BENAZEPRIL HYDROCHLORIDE [Concomitant]
     Route: 065
  18. ATORVASTATIN [Concomitant]
     Route: 065

REACTIONS (4)
  - CATARACT OPERATION [None]
  - BLOOD GLUCOSE INCREASED [None]
  - MACULAR DEGENERATION [None]
  - PRODUCT QUALITY ISSUE [None]
